FAERS Safety Report 7106414-3 (Version None)
Quarter: 2010Q4

REPORT INFORMATION
  Report Type: 
  Country: None (occurrence: None)
  Receive Date: 20101116
  Receipt Date: 20100521
  Transmission Date: 20110411
  Serious: No
  Sender: FDA-Public Use
  Company Number: US-PFIZER INC-2010064272

PATIENT
  Sex: Male

DRUGS (3)
  1. TOVIAZ [Suspect]
     Indication: HYPERTONIC BLADDER
     Dosage: UNK
     Route: 048
     Dates: start: 20100501
  2. PILOCARPINE [Concomitant]
     Indication: DRY MOUTH
  3. TAMSULOSIN [Concomitant]

REACTIONS (2)
  - DRUG INEFFECTIVE [None]
  - FRUSTRATION [None]
